FAERS Safety Report 9911572 (Version 1)
Quarter: 2014Q1

REPORT INFORMATION
  Report Type: Spontaneous
  Country: US (occurrence: US)
  Receive Date: 20140219
  Receipt Date: 20140219
  Transmission Date: 20141002
  Serious: Yes (Other)
  Sender: FDA-Public Use
  Company Number: PHEH2014US003083

PATIENT
  Age: 81 Year
  Sex: Female

DRUGS (2)
  1. DIOVAN HCT [Suspect]
     Dosage: 80MG VALSARTAN/12.5MG HCT
  2. DIOVAN HCT [Suspect]
     Dosage: 160MG VALS/12.5MG HCT

REACTIONS (6)
  - Spinal column stenosis [Unknown]
  - Pain [Unknown]
  - Sciatica [Unknown]
  - Feeling abnormal [Unknown]
  - Blood pressure increased [Unknown]
  - Dizziness [Unknown]
